FAERS Safety Report 26064126 (Version 2)
Quarter: 2025Q4

REPORT INFORMATION
  Report Type: Report from Study
  Country: CA (occurrence: CA)
  Receive Date: 20251119
  Receipt Date: 20251208
  Transmission Date: 20260117
  Serious: No
  Sender: BIOGEN
  Company Number: CA-BIOGEN-2022BI01106348

PATIENT
  Age: 45 Year
  Sex: Female

DRUGS (2)
  1. TYSABRI [Suspect]
     Active Substance: NATALIZUMAB
     Indication: Multiple sclerosis
     Dates: start: 20091102
  2. TYSABRI [Suspect]
     Active Substance: NATALIZUMAB
     Indication: Relapsing-remitting multiple sclerosis

REACTIONS (6)
  - Nasopharyngitis [Recovered/Resolved]
  - Product dose omission issue [Unknown]
  - Cough [Recovered/Resolved]
  - Sinus congestion [Recovered/Resolved]
  - Upper-airway cough syndrome [Recovered/Resolved]
  - Multiple allergies [Recovered/Resolved]

NARRATIVE: CASE EVENT DATE: 20251112
